FAERS Safety Report 8449770-6 (Version None)
Quarter: 2012Q2

REPORT INFORMATION
  Report Type: 
  Country: None (occurrence: None)
  Receive Date: 20120614
  Receipt Date: 20120614
  Transmission Date: 20120825
  Serious: Yes (Hospitalization)
  Sender: FDA-Public Use
  Company Number: None

PATIENT
  Age: 58 Year
  Sex: Female
  Weight: 66.6788 kg

DRUGS (2)
  1. TEMODAR [Suspect]
     Indication: BRAIN NEOPLASM MALIGNANT
     Dosage: 140MG ONCE DAILY ORAL
     Route: 048
     Dates: start: 20120517
  2. ONDANSETRON (ZOFRAN) [Concomitant]

REACTIONS (1)
  - DEEP VEIN THROMBOSIS [None]
